FAERS Safety Report 11098064 (Version 2)
Quarter: 2015Q2

REPORT INFORMATION
  Report Type: Spontaneous
  Country: US (occurrence: US)
  Receive Date: 20150507
  Receipt Date: 20150512
  Transmission Date: 20150821
  Serious: No
  Sender: FDA-Public Use
  Company Number: US-PFIZER INC-2015102022

PATIENT
  Age: 44 Year
  Sex: Female

DRUGS (17)
  1. ACETAMINOPHEN, HYDROCODONE [Concomitant]
     Active Substance: ACETAMINOPHEN\HYDROCODONE BITARTRATE
     Indication: PAIN
     Dosage: HYDROCODONE 5MG, PARACETAMOL 325MG EVERY 4 H AS NEEDED
     Route: 048
     Dates: start: 20140620
  2. HERCEPTIN [Suspect]
     Active Substance: TRASTUZUMAB
     Dosage: 2 MG/KG, WEEKLY
     Dates: start: 20150109
  3. ACETAMINOPHEN. [Concomitant]
     Active Substance: ACETAMINOPHEN
     Indication: PYREXIA
     Dosage: 650 MG, AS NEEDED
     Route: 048
     Dates: start: 20150109
  4. BETAMETHASONE DIPROPIONATE. [Concomitant]
     Active Substance: BETAMETHASONE DIPROPIONATE
     Indication: GRANULOMA ANNULARE
     Dosage: 0.05 %, AS NEEDED (THREE TIMES DAILY PRN)
     Dates: start: 2014
  5. NIFEDIPINE PLASTIBASE [Concomitant]
     Indication: ANORECTAL DISORDER
     Dosage: 1 %, AS NEEDED (2 BID)
     Dates: start: 2014
  6. PREDNISONE. [Concomitant]
     Active Substance: PREDNISONE
     Indication: CROHN^S DISEASE
     Dosage: UNK
     Dates: start: 20141104
  7. EMEND [Concomitant]
     Active Substance: APREPITANT
     Dosage: 80 MG, FOR THREE DAYS AT TIME OF CHEMOTHERAPY TREATMENT
     Route: 048
     Dates: start: 20141113
  8. ADRIAMYCIN [Suspect]
     Active Substance: DOXORUBICIN HYDROCHLORIDE
     Indication: BREAST CANCER
     Dosage: 60 MG/M2, UNK
     Route: 042
     Dates: start: 20141113, end: 20141224
  9. DEXAMETHASONE. [Concomitant]
     Active Substance: DEXAMETHASONE
     Dosage: 12 MG, (ON DAY OF CHEMOTHERAPY)
     Route: 048
  10. DEXAMETHASONE. [Concomitant]
     Active Substance: DEXAMETHASONE
     Dosage: 8 MG, DAILY (FOR THREE DAYS AFTER TREATMENT)
     Route: 048
  11. DIPHENHYDRAMINE [Concomitant]
     Active Substance: DIPHENHYDRAMINE
     Dosage: 50 MG, UNK
     Dates: start: 20150109
  12. HERCEPTIN [Suspect]
     Active Substance: TRASTUZUMAB
     Indication: BREAST CANCER
     Dosage: 4 MG/KG, UNK (LOADING DOSE)
     Dates: start: 20150109
  13. GRANISETRON [Concomitant]
     Active Substance: GRANISETRON
     Indication: NAUSEA
     Dosage: 2 MG, UNK
     Route: 048
     Dates: start: 20141113
  14. LORAZEPAM. [Concomitant]
     Active Substance: LORAZEPAM
     Dosage: 1 MG, UNK
     Route: 048
     Dates: start: 20141113
  15. LOPERAMIDE [Concomitant]
     Active Substance: LOPERAMIDE
     Dosage: UNK
     Dates: start: 2014
  16. DIPHENOXYLATE/ATROPINE [Concomitant]
     Active Substance: ATROPINE\DIPHENOXYLATE
     Dosage: UNK
     Dates: start: 201501
  17. CYTOXAN [Concomitant]
     Active Substance: CYCLOPHOSPHAMIDE
     Indication: BREAST CANCER
     Dosage: 600 MG/M2, UNK
     Dates: start: 20141113, end: 20141224

REACTIONS (2)
  - Ejection fraction decreased [Unknown]
  - Cardiomyopathy [Not Recovered/Not Resolved]

NARRATIVE: CASE EVENT DATE: 20150122
